FAERS Safety Report 8317803 (Version 2)
Quarter: 2013Q1

REPORT INFORMATION
  Report Type: Spontaneous
  Country: FR (occurrence: FR)
  Receive Date: 20120102
  Receipt Date: 20130307
  Transmission Date: 20140127
  Serious: Yes (Life-Threatening)
  Sender: FDA-Public Use
  Company Number: FR-ROCHE-1023909

PATIENT
  Age: 20 Year
  Sex: Female

DRUGS (6)
  1. RIVOTRIL [Suspect]
     Indication: PRODUCT USED FOR UNKNOWN INDICATION
     Route: 048
     Dates: start: 20080119
  2. TEGRETOL [Suspect]
     Indication: PRODUCT USED FOR UNKNOWN INDICATION
     Route: 048
     Dates: start: 20080119
  3. ASPEGIC [Concomitant]
  4. PARACETAMOL [Concomitant]
  5. EFFERALGAN [Concomitant]
     Dosage: 2 OR 3 PER DAY
     Route: 065
  6. ASPEGIC [Concomitant]

REACTIONS (3)
  - Hepatitis fulminant [Recovered/Resolved with Sequelae]
  - Liver transplant [Recovered/Resolved with Sequelae]
  - Drug reaction with eosinophilia and systemic symptoms [Recovered/Resolved with Sequelae]
